FAERS Safety Report 6476746-0 (Version None)
Quarter: 2009Q4

REPORT INFORMATION
  Report Type: 
  Country: None (occurrence: None)
  Receive Date: 20091207
  Receipt Date: 20091124
  Transmission Date: 20100525
  Serious: Yes (Other)
  Sender: FDA-Public Use
  Company Number: PHEH2009US15530

PATIENT
  Sex: Female
  Weight: 77.098 kg

DRUGS (3)
  1. SANDOSTATIN LAR [Suspect]
     Indication: ACROMEGALY
     Dosage: 40 MG, QMO
     Route: 030
     Dates: start: 20090817
  2. SANDOSTATIN LAR [Suspect]
     Dosage: 30 MG, QMO
     Route: 030
  3. AMBIEN [Concomitant]
     Dosage: 5 MG, PRN
     Route: 048

REACTIONS (7)
  - BODY TEMPERATURE INCREASED [None]
  - FACIAL PAIN [None]
  - FATIGUE [None]
  - HEADACHE [None]
  - PITUITARY TUMOUR REMOVAL [None]
  - VISUAL FIELD DEFECT [None]
  - VISUAL IMPAIRMENT [None]
